FAERS Safety Report 6935918-9 (Version None)
Quarter: 2010Q3

REPORT INFORMATION
  Report Type: 
  Country: None (occurrence: None)
  Receive Date: 20100819
  Receipt Date: 20100819
  Transmission Date: 20110219
  Serious: Yes (Life-Threatening, Hospitalization)
  Sender: FDA-Public Use
  Company Number: None

PATIENT
  Age: 62 Year
  Sex: Male
  Weight: 53 kg

DRUGS (1)
  1. HEPARIN [Suspect]
     Indication: MYOCARDIAL INFARCTION
     Dosage: 14000 UNITS EVERY DAY IV
     Route: 042
     Dates: start: 20100415, end: 20100415

REACTIONS (4)
  - ANTI-PLATELET ANTIBODY POSITIVE [None]
  - HEPARIN-INDUCED THROMBOCYTOPENIA TEST [None]
  - THROMBOCYTOPENIA [None]
  - THROMBOSIS [None]
